FAERS Safety Report 25108388 (Version 1)
Quarter: 2025Q1

REPORT INFORMATION
  Report Type: Spontaneous
  Country: US (occurrence: US)
  Receive Date: 20250322
  Receipt Date: 20250322
  Transmission Date: 20250409
  Serious: Yes (Hospitalization)
  Sender: AMGEN
  Company Number: US-AMGEN-USASP2025052226

PATIENT
  Age: 16 Year
  Sex: Male

DRUGS (2)
  1. NEULASTA [Suspect]
     Active Substance: PEGFILGRASTIM
     Indication: Prophylaxis
     Route: 065
  2. NEULASTA [Suspect]
     Active Substance: PEGFILGRASTIM
     Route: 065

REACTIONS (4)
  - Unevaluable event [Unknown]
  - Device physical property issue [Unknown]
  - Wrong technique in product usage process [Unknown]
  - Device use confusion [Unknown]

NARRATIVE: CASE EVENT DATE: 20250301
